FAERS Safety Report 5956528-6 (Version None)
Quarter: 2008Q4

REPORT INFORMATION
  Report Type: 
  Country: None (occurrence: None)
  Receive Date: 20081118
  Receipt Date: 20081113
  Transmission Date: 20090506
  Serious: Yes (Other)
  Sender: FDA-Public Use
  Company Number: B0546024A

PATIENT
  Age: 71 Year
  Sex: Male

DRUGS (3)
  1. AVANDIA [Suspect]
     Route: 048
     Dates: start: 20061001
  2. FERROSANOL [Suspect]
     Route: 065
     Dates: start: 20080301
  3. VALSARTAN [Concomitant]
     Indication: HYPERTENSION
     Route: 065

REACTIONS (4)
  - ANAEMIA [None]
  - ANOSMIA [None]
  - DRUG INTERACTION [None]
  - HYPERSENSITIVITY [None]
